FAERS Safety Report 9148628 (Version 1)
Quarter: 2013Q1

REPORT INFORMATION
  Report Type: Spontaneous
  Country: US (occurrence: US)
  Receive Date: 20130308
  Receipt Date: 20130308
  Transmission Date: 20140127
  Serious: Yes (Other)
  Sender: FDA-Public Use
  Company Number: US-ENDO PHARMACEUTICALS INC.-OPCR20121927

PATIENT
  Sex: Male
  Weight: 74.91 kg

DRUGS (1)
  1. OPANA ER 20MG [Suspect]
     Indication: PRODUCT USED FOR UNKNOWN INDICATION
     Route: 048
     Dates: start: 2012

REACTIONS (2)
  - Drug abuse [Unknown]
  - Drug screen positive [Unknown]
